FAERS Safety Report 21791434 (Version 3)
Quarter: 2023Q2

REPORT INFORMATION
  Report Type: Spontaneous
  Country: US (occurrence: US)
  Receive Date: 20221228
  Receipt Date: 20230404
  Transmission Date: 20230721
  Serious: Yes (Death, Other)
  Sender: FDA-Public Use
  Company Number: US-BEH-2022153581

PATIENT
  Age: 75 Year
  Sex: Male

DRUGS (21)
  1. PRIVIGEN [Suspect]
     Active Substance: HUMAN IMMUNOGLOBULIN G
     Indication: Myasthenia gravis
     Dosage: 30 GRAM, QMT
     Route: 042
     Dates: start: 202202
  2. PRIVIGEN [Suspect]
     Active Substance: HUMAN IMMUNOGLOBULIN G
     Indication: Arteriosclerosis
  3. PRIVIGEN [Suspect]
     Active Substance: HUMAN IMMUNOGLOBULIN G
     Indication: Myasthenia gravis
  4. TYLENOL [Concomitant]
     Active Substance: ACETAMINOPHEN
     Indication: Pain
     Dosage: 325 MILLIGRAM, QID
  5. VENTOLIN HFA [Concomitant]
     Active Substance: ALBUTEROL SULFATE
     Indication: Wheezing
     Dosage: 2 PUFFS, EVERY FOUR HOURS AS NEEDED
  6. ELIQUIS [Concomitant]
     Active Substance: APIXABAN
     Dosage: 5 MILLIGRAM, BID
     Route: 048
  7. LIPITOR [Concomitant]
     Active Substance: ATORVASTATIN CALCIUM
     Dosage: 80 MILLIGRAM, QD
     Route: 048
  8. SYMBICORT [Concomitant]
     Active Substance: BUDESONIDE\FORMOTEROL FUMARATE DIHYDRATE
     Dosage: 2 PUFFS, BID
  9. VITAMIN D3 [Concomitant]
     Active Substance: CHOLECALCIFEROL
     Dosage: 1250 MICROGRAM, QW
     Route: 048
  10. CYANOCOBALAMIN [Concomitant]
     Active Substance: CYANOCOBALAMIN
     Dosage: 1000 MICROGRAM, QOW
  11. JARDIANCE [Concomitant]
     Active Substance: EMPAGLIFLOZIN
     Dosage: 10 MILLIGRAM, QD
     Route: 048
  12. BASAGLAR KWIKPEN [Concomitant]
     Active Substance: INSULIN GLARGINE
     Dosage: 10 INTERNATIONAL UNIT, QD
     Route: 058
  13. SYNTHROID [Concomitant]
     Active Substance: LEVOTHYROXINE SODIUM
     Dosage: 50 MICROGRAM, QD
     Route: 048
  14. GLUCOPHAGE [Concomitant]
     Active Substance: METFORMIN HYDROCHLORIDE
     Dosage: 500 MILLIGRAM, BID
     Route: 048
  15. ROBAXIN [Concomitant]
     Active Substance: METHOCARBAMOL
     Dosage: 750 MILLIGRAM, QID
     Route: 048
  16. POLYVINYL ALCOHOL;POVIDONE [Concomitant]
     Dosage: 1 DOSAGE FORM, PRN
  17. PREDNISOLONE [Concomitant]
     Active Substance: PREDNISOLONE
     Dosage: 30 MILLIGRAM, QD
  18. PREDNISOLONE [Concomitant]
     Active Substance: PREDNISOLONE
     Dosage: 20 MILLIGRAM, QD
  19. MESTINON [Concomitant]
     Active Substance: PYRIDOSTIGMINE BROMIDE
     Dosage: 120 MILLIGRAM, QID
     Route: 048
  20. ZOLOFT [Concomitant]
     Active Substance: SERTRALINE HYDROCHLORIDE
     Dosage: 25 MILLIGRAM, QD
     Route: 048
  21. DESYREL [Concomitant]
     Active Substance: TRAZODONE HYDROCHLORIDE
     Dosage: 50 MILLIGRAM, QD
     Route: 048

REACTIONS (8)
  - Death [Fatal]
  - No adverse event [Unknown]
  - Off label use [Unknown]
  - Abdominal pain [Unknown]
  - Pancreatic carcinoma metastatic [Unknown]
  - Metastases to liver [Unknown]
  - Metastases to lung [Unknown]
  - Pancreatitis [Unknown]

NARRATIVE: CASE EVENT DATE: 20221126
